FAERS Safety Report 6194940-3 (Version None)
Quarter: 2009Q2

REPORT INFORMATION
  Report Type: 
  Country: None (occurrence: None)
  Receive Date: 20090515
  Receipt Date: 20090515
  Transmission Date: 20091009
  Serious: Yes (Other)
  Sender: FDA-Public Use
  Company Number: None

PATIENT
  Sex: Female
  Weight: 61.2356 kg

DRUGS (1)
  1. FLURAZEPAM [Suspect]
     Indication: INSOMNIA
     Dosage: 1 CAPSULE ONCE A DAY PO
     Route: 048
     Dates: start: 20090511, end: 20090513

REACTIONS (5)
  - ANTISOCIAL BEHAVIOUR [None]
  - CRYING [None]
  - DEPRESSED MOOD [None]
  - PANIC ATTACK [None]
  - SUICIDAL IDEATION [None]
